FAERS Safety Report 10061339 (Version 1)
Quarter: 2014Q2

REPORT INFORMATION
  Report Type: Spontaneous
  Country: RU (occurrence: RU)
  Receive Date: 20140407
  Receipt Date: 20140407
  Transmission Date: 20141212
  Serious: Yes (Other)
  Sender: FDA-Public Use
  Company Number: RU-ROCHE-1375473

PATIENT
  Age: 66 Year
  Sex: Male

DRUGS (13)
  1. MABTHERA [Suspect]
     Indication: CHRONIC LYMPHOCYTIC LEUKAEMIA
     Route: 065
     Dates: start: 2008
  2. MABTHERA [Suspect]
     Route: 065
     Dates: start: 2010
  3. MABTHERA [Suspect]
     Route: 065
     Dates: start: 20101118
  4. SOLU-MEDROL [Concomitant]
     Route: 065
     Dates: start: 2010
  5. CYCLOPHOSPHAMIDE [Concomitant]
  6. DOXORUBICIN [Concomitant]
  7. VINCRISTINE [Concomitant]
  8. PREDNISONE [Concomitant]
  9. DESFERAL [Concomitant]
     Dosage: 2100 MCG/L
     Route: 065
     Dates: start: 20091204
  10. INTERFERON ALFA-2A [Concomitant]
     Route: 065
  11. PREDNISOLONE [Concomitant]
  12. METIPRED [Concomitant]
  13. CYCLOPHOSPHANE [Concomitant]
     Dosage: 100-200 MG DAILY
     Route: 065

REACTIONS (1)
  - Autoimmune haemolytic anaemia [Recovered/Resolved]
